FAERS Safety Report 16109083 (Version 1)
Quarter: 2019Q1

REPORT INFORMATION
  Report Type: Spontaneous
  Country: US (occurrence: US)
  Receive Date: 20190323
  Receipt Date: 20190323
  Transmission Date: 20190418
  Serious: No
  Sender: FDA-Public Use
  Company Number: US-009507513-1903USA008851

PATIENT
  Sex: Male
  Weight: 72.57 kg

DRUGS (2)
  1. COZAAR [Suspect]
     Active Substance: LOSARTAN POTASSIUM
     Indication: HYPERTENSION
     Dosage: 100/12.5 MG ONCE DAILY
     Route: 048
     Dates: end: 2018
  2. METFORMIN [Suspect]
     Active Substance: METFORMIN HYDROCHLORIDE
     Indication: GLUCOSE TOLERANCE IMPAIRED
     Dosage: 500 MILLIGRAM, ONCE DAILY
     Dates: end: 2018

REACTIONS (1)
  - Blood potassium decreased [Unknown]
